FAERS Safety Report 25712558 (Version 1)
Quarter: 2025Q3

REPORT INFORMATION
  Report Type: Spontaneous
  Country: CN (occurrence: CN)
  Receive Date: 20250821
  Receipt Date: 20250821
  Transmission Date: 20251021
  Serious: Yes (Other)
  Sender: PFIZER
  Company Number: CN-PFIZER INC-PV202500100585

PATIENT
  Age: 9 Year
  Sex: Male
  Weight: 37.5 kg

DRUGS (2)
  1. METHOTREXATE SODIUM [Suspect]
     Active Substance: METHOTREXATE SODIUM
     Indication: Acute lymphocytic leukaemia
     Dosage: 2.6 MG, 2X/DAY
     Route: 041
     Dates: start: 20250722, end: 20250722
  2. DEXTROSE [Concomitant]
     Active Substance: DEXTROSE MONOHYDRATE
     Indication: Vehicle solution use
     Dosage: 500 ML, 2X/DAY
     Route: 041
     Dates: start: 20250722, end: 20250722

REACTIONS (1)
  - Mucosal ulceration [Unknown]

NARRATIVE: CASE EVENT DATE: 20250730
